FAERS Safety Report 11363267 (Version 5)
Quarter: 2015Q4

REPORT INFORMATION
  Report Type: Spontaneous
  Country: IT (occurrence: IT)
  Receive Date: 20150811
  Receipt Date: 20151216
  Transmission Date: 20160304
  Serious: Yes (Death, Hospitalization)
  Sender: FDA-Public Use
  Company Number: IT-ROCHE-1619873

PATIENT
  Age: 74 Year
  Sex: Male

DRUGS (4)
  1. RIBAVIRIN. [Suspect]
     Active Substance: RIBAVIRIN
     Indication: HEPATITIS C
     Dosage: PERIOD- 20 DAYS
     Route: 048
     Dates: start: 20150627
  2. PROPRANOLOL HYDROCHLORIDE. [Concomitant]
     Active Substance: PROPRANOLOL HYDROCHLORIDE
     Route: 048
  3. METFORMIN [Concomitant]
     Active Substance: METFORMIN HYDROCHLORIDE
     Indication: DIABETES MELLITUS
     Dosage: 3 DOSAGE FORM
     Route: 048
  4. HARVONI [Suspect]
     Active Substance: LEDIPASVIR\SOFOSBUVIR
     Indication: HEPATITIS C
     Dosage: 90 MG/400 MG FILM-COATED TABLETS. PERIOD- 20 DAYS
     Route: 048
     Dates: start: 20150627

REACTIONS (7)
  - Cardiac disorder [Fatal]
  - Hallucination [Unknown]
  - Cerebral hygroma [Fatal]
  - Disorientation [Unknown]
  - Dyskinesia [Unknown]
  - Malaise [Unknown]
  - Ammonia increased [Fatal]

NARRATIVE: CASE EVENT DATE: 20150706
